FAERS Safety Report 20351909 (Version 2)
Quarter: 2022Q1

REPORT INFORMATION
  Report Type: Spontaneous
  Country: SK (occurrence: RS)
  Receive Date: 20220119
  Receipt Date: 20220216
  Transmission Date: 20220423
  Serious: Yes (Other)
  Sender: FDA-Public Use
  Company Number: SK-PFIZER INC-202200053547

PATIENT
  Age: 68 Year
  Sex: Male

DRUGS (3)
  1. FLUCONAZOLE [Interacting]
     Active Substance: FLUCONAZOLE
     Dosage: UNK
  2. CIPROFLOXACIN [Interacting]
     Active Substance: CIPROFLOXACIN
     Dosage: UNK
  3. WARFARIN [Interacting]
     Active Substance: WARFARIN
     Dosage: UNK

REACTIONS (2)
  - Drug interaction [Unknown]
  - Anticoagulation drug level increased [Unknown]
